FAERS Safety Report 21995052 (Version 1)
Quarter: 2023Q1

REPORT INFORMATION
  Report Type: Spontaneous
  Country: IN (occurrence: IN)
  Receive Date: 20230215
  Receipt Date: 20230215
  Transmission Date: 20230418
  Serious: Yes (Other)
  Sender: FDA-Public Use
  Company Number: IN-OptiNose US, Inc-2023OPT000016

PATIENT
  Age: 19 Year
  Sex: Female

DRUGS (1)
  1. XHANCE [Suspect]
     Active Substance: FLUTICASONE PROPIONATE
     Indication: Rhinitis allergic
     Dosage: AS NEEDED
     Route: 045

REACTIONS (2)
  - Idiopathic intracranial hypertension [Recovered/Resolved]
  - Product use in unapproved indication [Unknown]
